FAERS Safety Report 21356992 (Version 4)
Quarter: 2024Q1

REPORT INFORMATION
  Report Type: Report from Study
  Country: BR (occurrence: BR)
  Receive Date: 20220921
  Receipt Date: 20240213
  Transmission Date: 20240410
  Serious: Yes (Other)
  Sender: FDA-Public Use
  Company Number: BR-AMGEN-BRASL2022160661

PATIENT
  Age: 67 Year
  Sex: Male

DRUGS (15)
  1. VECTIBIX [Suspect]
     Active Substance: PANITUMUMAB
     Indication: Colorectal cancer metastatic
     Dosage: UNK, EVERY 15 DAYS CATHETER (PORT-A-CATH)
     Route: 042
     Dates: start: 20220627
  2. XULTOPHY 100/3.6 [Concomitant]
     Active Substance: INSULIN DEGLUDEC\LIRAGLUTIDE
     Indication: Type 2 diabetes mellitus
     Dosage: UNK 10 UNITS A DAY ONCE A DAY
     Route: 065
  3. XIGDUO XR [Concomitant]
     Active Substance: DAPAGLIFLOZIN PROPANEDIOL\METFORMIN HYDROCHLORIDE
     Indication: Type 2 diabetes mellitus
     Dosage: UNK 1 TABLET IN THE MORNING AND 1 TABLET IN THE EVENING
     Route: 065
  4. DUTASTERIDE\TAMSULOSIN [Concomitant]
     Active Substance: DUTASTERIDE\TAMSULOSIN
     Indication: Prostatomegaly
     Dosage: UNK UNK, QD 1 TABLET IN THE EVENING
     Route: 065
  5. DUTASTERIDE\TAMSULOSIN [Concomitant]
     Active Substance: DUTASTERIDE\TAMSULOSIN
     Dosage: UNK, QD 0.5 MG+ 0.4 MG 1 TABLET AT NIGHT
     Route: 065
  6. BENICAR [Concomitant]
     Active Substance: OLMESARTAN MEDOXOMIL
     Indication: Hypertension
     Dosage: UNK 20/5 MG 1 TABLET A DAY
     Route: 065
  7. BENICAR [Concomitant]
     Active Substance: OLMESARTAN MEDOXOMIL
     Dosage: UNK 10/40 MG 1 TABLET A DAY
     Route: 065
  8. BENICAR [Concomitant]
     Active Substance: OLMESARTAN MEDOXOMIL
     Dosage: UNK, 40MG+5MG 1 TABLET A DAY
  9. PREGABALIN [Concomitant]
     Active Substance: PREGABALIN
     Indication: Product used for unknown indication
     Dosage: 75 MILLIGRAM, QD
  10. DOXYCYCLINE [Concomitant]
     Active Substance: DOXYCYCLINE
     Indication: Product used for unknown indication
     Dosage: 100 MILLIGRAM, QD
     Route: 065
  11. DOXYCYCLINE [Concomitant]
     Active Substance: DOXYCYCLINE
     Dosage: 200 MILLIGRAM, QD (2 TABLETS PER DAY)
  12. DAPAGLIFLOZIN [Concomitant]
     Active Substance: DAPAGLIFLOZIN
     Dosage: 10 MILLIGRAM, QD (1 TABLET A DAY)
  13. GLIFAGE [Concomitant]
     Active Substance: METFORMIN HYDROCHLORIDE
     Dosage: 500 MILLIGRAM, QID 4 TABLETS PER DAY
  14. ROSUVASTATIN [Concomitant]
     Active Substance: ROSUVASTATIN
     Dosage: 10 MILLIGRAM, QD
     Route: 065
  15. HYDROCORTISONE [Concomitant]
     Active Substance: HYDROCORTISONE
     Dosage: 10 MILLIGRAM, QD (APPLY ONCE A DAY)
     Route: 061

REACTIONS (13)
  - Burn oral cavity [Unknown]
  - Contusion [Unknown]
  - Tongue disorder [Unknown]
  - Peripheral swelling [Unknown]
  - Breath odour [Unknown]
  - Stomatitis [Unknown]
  - Skin exfoliation [Unknown]
  - Dry skin [Unknown]
  - Acne [Unknown]
  - Skin fissures [Unknown]
  - Pruritus [Recovering/Resolving]
  - Surgery [Unknown]
  - Erythema [Recovering/Resolving]

NARRATIVE: CASE EVENT DATE: 20220101
